FAERS Safety Report 15126227 (Version 2)
Quarter: 2018Q3

REPORT INFORMATION
  Report Type: Report from Study
  Country: JP (occurrence: JP)
  Receive Date: 20180710
  Receipt Date: 20180727
  Transmission Date: 20181010
  Serious: Yes (Death, Life-Threatening)
  Sender: FDA-Public Use
  Company Number: JP-BEH-2018092583

PATIENT
  Age: 63 Year
  Sex: Female
  Weight: 30 kg

DRUGS (4)
  1. KAYTWO N [Concomitant]
     Active Substance: MENATETRENONE
     Indication: PROCOAGULANT THERAPY
     Dosage: 10 MG, UNK
     Route: 042
     Dates: start: 20180601
  2. WARFARIN [Concomitant]
     Active Substance: WARFARIN
     Indication: ATRIAL FIBRILLATION
     Dosage: 2 MG, UNK
     Route: 048
     Dates: start: 20170117, end: 20180601
  3. BERIPLEX P/N [Suspect]
     Active Substance: COAGULATION FACTOR IX HUMAN\COAGULATION FACTOR VII HUMAN\COAGULATION FACTOR X HUMAN\PROTEIN C\PROTEIN S HUMAN\PROTHROMBIN
     Indication: HAEMORRHAGE
     Dosage: 750 IU, UNK
     Route: 042
     Dates: start: 20180601
  4. WARFARIN [Concomitant]
     Active Substance: WARFARIN
     Indication: ANTICOAGULANT THERAPY

REACTIONS (5)
  - Altered state of consciousness [Fatal]
  - Brain herniation [Fatal]
  - Pneumonia aspiration [Fatal]
  - Brain oedema [Fatal]
  - Cardiac failure [Fatal]

NARRATIVE: CASE EVENT DATE: 201806
